FAERS Safety Report 21330555 (Version 1)
Quarter: 2022Q3

REPORT INFORMATION
  Report Type: Spontaneous
  Country: US (occurrence: US)
  Receive Date: 20220913
  Receipt Date: 20220913
  Transmission Date: 20221026
  Serious: Yes (Other)
  Sender: FDA-Public Use
  Company Number: US-ELI_LILLY_AND_COMPANY-US202209000999

PATIENT

DRUGS (1)
  1. CYMBALTA [Suspect]
     Active Substance: DULOXETINE HYDROCHLORIDE
     Indication: Pain
     Dosage: UNK UNK, UNKNOWN
     Route: 065

REACTIONS (5)
  - Syncope [Unknown]
  - Paranoia [Unknown]
  - Nervous system disorder [Unknown]
  - Nervousness [Unknown]
  - Dizziness [Unknown]

NARRATIVE: CASE EVENT DATE: 20190101
